FAERS Safety Report 9282666 (Version 1)
Quarter: 2013Q2

REPORT INFORMATION
  Report Type: Spontaneous
  Country: US (occurrence: None)
  Receive Date: 20130509
  Receipt Date: 20130509
  Transmission Date: 20140414
  Serious: Yes (Hospitalization)
  Sender: FDA-Public Use
  Company Number: None

PATIENT
  Sex: 0
  Weight: 148.33 kg

DRUGS (16)
  1. ALEMTUZUMAB [Suspect]
     Indication: MULTIPLE SCLEROSIS
     Route: 042
     Dates: start: 20130107, end: 20130111
  2. SOLUMEDROL [Suspect]
     Dates: start: 20130107, end: 20130109
  3. ACYCLOVIR  400 MG [Concomitant]
  4. CARBAMAZOFIN  200 MG [Concomitant]
  5. CYANOCOBALAMINE [Concomitant]
  6. CYMBALTA 60 MG ELI LILL [Concomitant]
  7. DIAZEPAM  2MG [Concomitant]
  8. GABAPATIN 600MG [Concomitant]
  9. MELOXICAM [Concomitant]
  10. METHYLPHENIDATE [Concomitant]
  11. ONDANSETRAN [Concomitant]
  12. PRAMIPEZOLE [Concomitant]
  13. PODRIN [Concomitant]
  14. PROMETHAZINE [Concomitant]
  15. SIMVASTATIN [Concomitant]
  16. TAMULOSIN ER [Concomitant]

REACTIONS (4)
  - Cardiac failure congestive [None]
  - Disease recurrence [None]
  - Sleep apnoea syndrome [None]
  - Cor pulmonale [None]
